FAERS Safety Report 10444040 (Version 1)
Quarter: 2014Q3

REPORT INFORMATION
  Report Type: Spontaneous
  Country: TR (occurrence: None)
  Receive Date: 20140908
  Receipt Date: 20140908
  Transmission Date: 20150326
  Serious: Yes (Other)
  Sender: FDA-Public Use
  Company Number: 2014COV00105

PATIENT
  Age: 63 Year
  Sex: Male

DRUGS (1)
  1. PLAQUENIL [Suspect]
     Active Substance: HYDROXYCHLOROQUINE SULFATE
     Indication: SYSTEMIC LUPUS ERYTHEMATOSUS
     Route: 048
     Dates: start: 2013, end: 20140815

REACTIONS (3)
  - Visual field defect [None]
  - Cerebral ischaemia [None]
  - Cerebral vasoconstriction [None]

NARRATIVE: CASE EVENT DATE: 20140814
